FAERS Safety Report 6851486-4 (Version None)
Quarter: 2010Q3

REPORT INFORMATION
  Report Type: 
  Country: None (occurrence: None)
  Receive Date: 20100717
  Receipt Date: 20080119
  Transmission Date: 20110219
  Serious: No
  Sender: FDA-Public Use
  Company Number: US-PFIZER INC-2008008028

PATIENT
  Sex: Male
  Weight: 113.63 kg

DRUGS (2)
  1. CHANTIX [Suspect]
     Indication: SMOKING CESSATION THERAPY
     Route: 048
     Dates: start: 20080113
  2. ULTRAM [Concomitant]
     Indication: MUSCULOSKELETAL PAIN

REACTIONS (5)
  - COUGH [None]
  - DIZZINESS [None]
  - HEADACHE [None]
  - NAUSEA [None]
  - PRESYNCOPE [None]
